FAERS Safety Report 5137420-6 (Version None)
Quarter: 2006Q4

REPORT INFORMATION
  Report Type: 
  Country: None (occurrence: None)
  Receive Date: 20061030
  Receipt Date: 20051031
  Transmission Date: 20070319
  Serious: No
  Sender: FDA-Public Use
  Company Number: US-GLAXOSMITHKLINE-A0580316A

PATIENT
  Age: 68 Year
  Sex: Female

DRUGS (9)
  1. ADVAIR HFA [Suspect]
     Dosage: 1PUFF TWICE PER DAY
     Route: 055
     Dates: start: 20040301
  2. XANAX [Concomitant]
  3. PROZAC [Concomitant]
  4. COUMADIN [Concomitant]
  5. COZAAR [Concomitant]
  6. LEVOTHYROXINE SODIUM [Concomitant]
  7. ALLEGRA [Concomitant]
  8. ATENOLOL [Concomitant]
  9. DILTIAZEM HCL [Concomitant]

REACTIONS (2)
  - DRUG INEFFECTIVE [None]
  - PHARMACEUTICAL PRODUCT COMPLAINT [None]
